FAERS Safety Report 23894329 (Version 1)
Quarter: 2024Q2

REPORT INFORMATION
  Report Type: Spontaneous
  Country: US (occurrence: US)
  Receive Date: 20240524
  Receipt Date: 20240524
  Transmission Date: 20240716
  Serious: No
  Sender: FDA-Public Use
  Company Number: US-AMGEN-USASP2024100464

PATIENT
  Age: 76 Year
  Sex: Female

DRUGS (2)
  1. RIABNI [Suspect]
     Active Substance: RITUXIMAB-ARRX
     Indication: Product used for unknown indication
     Dosage: 900 MILLIGRAM ( 1X500 MG VIAL,  4X100 MG VIALS)
     Route: 065
  2. RIABNI [Suspect]
     Active Substance: RITUXIMAB-ARRX
     Dosage: 900 MILLIGRAM ( 1X500 MG VIAL,  4X100 MG VIALS)
     Route: 065

REACTIONS (1)
  - Malaise [Unknown]

NARRATIVE: CASE EVENT DATE: 20240521
